FAERS Safety Report 9805013 (Version 1)
Quarter: 2014Q1

REPORT INFORMATION
  Report Type: Report from Study
  Country: US (occurrence: US)
  Receive Date: 20140109
  Receipt Date: 20140109
  Transmission Date: 20141002
  Serious: Yes (Other)
  Sender: FDA-Public Use
  Company Number: US-ROCHE-1329384

PATIENT
  Sex: Male

DRUGS (11)
  1. AVASTIN [Suspect]
     Indication: DIABETIC RETINAL OEDEMA
     Dosage: MOST RECENT INJECTION: 13/JUL/2011
     Route: 065
  2. AVASTIN [Suspect]
     Indication: RETINAL VEIN OCCLUSION
  3. ASPIRIN [Concomitant]
     Route: 065
  4. B COMPLEX [Concomitant]
  5. CALCIUM ACETATE [Concomitant]
  6. EPOGEN [Concomitant]
     Dosage: 20,000 UNITS/MML
     Route: 065
  7. FISH OIL [Concomitant]
     Route: 065
  8. LANTUS SOLOSTAR [Concomitant]
     Dosage: 100 UNIT
     Route: 065
  9. LIPITOR [Concomitant]
     Route: 065
  10. METOPROLOL TARTRATE [Concomitant]
     Route: 065
  11. NOVOLOG [Concomitant]
     Dosage: 100 UNITS
     Route: 065

REACTIONS (3)
  - Diabetic retinal oedema [Unknown]
  - Eye swelling [Unknown]
  - Vision blurred [Unknown]
